FAERS Safety Report 8657220 (Version 5)
Quarter: 2013Q1

REPORT INFORMATION
  Report Type: Spontaneous
  Country: FR (occurrence: FR)
  Receive Date: 20120710
  Receipt Date: 20130315
  Transmission Date: 20140127
  Serious: Yes (Hospitalization)
  Sender: FDA-Public Use
  Company Number: FR-AMGEN-FRASP2012041092

PATIENT
  Age: 57 Year
  Sex: Female

DRUGS (5)
  1. ENBREL [Suspect]
     Indication: RHEUMATOID ARTHRITIS
     Dosage: 50 MG, WEEKLY
     Route: 058
     Dates: start: 20100928, end: 201204
  2. IMETH [Suspect]
     Dosage: 15 MG, WEEKLY
     Route: 048
     Dates: start: 201204, end: 20120528
  3. LAMALINE [Suspect]
     Dosage: UNK
     Route: 048
     Dates: start: 20120517, end: 20120525
  4. APRANAX [Suspect]
     Dosage: 550 MG DAILY INTERMITTENTLY
     Route: 048
     Dates: start: 2002, end: 20120525
  5. SPECIAFOLDINE [Suspect]
     Dosage: UNK
     Route: 048
     Dates: start: 2002, end: 20120525

REACTIONS (7)
  - Genital ulceration [Recovered/Resolved]
  - Vaginal ulceration [Recovered/Resolved]
  - Inflammation [Recovered/Resolved]
  - C-reactive protein increased [Recovered/Resolved]
  - Renal failure [Recovered/Resolved]
  - Vulval ulceration [Recovered/Resolved]
  - Neutropenia [Recovered/Resolved]
